FAERS Safety Report 6759007-1 (Version None)
Quarter: 2010Q2

REPORT INFORMATION
  Report Type: 
  Country: None (occurrence: None)
  Receive Date: 20100607
  Receipt Date: 20100525
  Transmission Date: 20101027
  Serious: Yes (Other)
  Sender: FDA-Public Use
  Company Number: PHHY2009CA13729

PATIENT
  Sex: Female

DRUGS (1)
  1. ACLASTA [Suspect]
     Indication: OSTEOPOROSIS
     Dosage: UNK
     Dates: start: 20090331

REACTIONS (7)
  - ARTHRALGIA [None]
  - BONE PAIN [None]
  - CHILLS [None]
  - FACE AND MOUTH X-RAY ABNORMAL [None]
  - PAIN IN EXTREMITY [None]
  - PYREXIA [None]
  - TOOTH ABSCESS [None]
